FAERS Safety Report 15082594 (Version 1)
Quarter: 2018Q2

REPORT INFORMATION
  Report Type: Spontaneous
  Country: US (occurrence: US)
  Receive Date: 20180628
  Receipt Date: 20180628
  Transmission Date: 20180711
  Serious: No
  Sender: FDA-Public Use
  Company Number: US-MYLANLABS-2018M1045418

PATIENT
  Sex: Male
  Weight: 86 kg

DRUGS (9)
  1. LISINOPRIL. [Concomitant]
     Active Substance: LISINOPRIL
     Indication: HYPERTENSION
     Dosage: UNK
  2. METOPROLOL. [Concomitant]
     Active Substance: METOPROLOL
     Indication: HYPERTENSION
     Dosage: UNK
  3. LIPITOR [Concomitant]
     Active Substance: ATORVASTATIN CALCIUM
     Indication: BLOOD CHOLESTEROL INCREASED
     Dosage: UNK
  4. ISOSORBIDE. [Concomitant]
     Active Substance: ISOSORBIDE
     Indication: HYPERTENSION
     Dosage: UNK
  5. MUSE [Suspect]
     Active Substance: ALPROSTADIL
     Indication: ERECTILE DYSFUNCTION
     Dosage: 1000 ?G, UNK, AS NEEDED
     Route: 066
     Dates: start: 20180610
  6. CLOPIDOGREL [Concomitant]
     Active Substance: CLOPIDOGREL BISULFATE
     Indication: ANTICOAGULANT THERAPY
     Dosage: UNK
  7. RANITIDINE. [Concomitant]
     Active Substance: RANITIDINE
     Indication: GASTROOESOPHAGEAL REFLUX DISEASE
     Dosage: UNK
  8. METFORMIN [Concomitant]
     Active Substance: METFORMIN HYDROCHLORIDE
     Indication: DIABETES MELLITUS
     Dosage: UNK
  9. TAMULOSIN [Concomitant]
     Active Substance: TAMSULOSIN
     Indication: NEPHROLITHIASIS
     Dosage: UNK

REACTIONS (1)
  - Drug ineffective [Unknown]
